FAERS Safety Report 5074325-3 (Version None)
Quarter: 2006Q3

REPORT INFORMATION
  Report Type: 
  Country: None (occurrence: None)
  Receive Date: 20060803
  Receipt Date: 20060726
  Transmission Date: 20061208
  Serious: Yes (Hospitalization)
  Sender: FDA-Public Use
  Company Number: 060530-0000486

PATIENT
  Age: 78 Year
  Sex: Male

DRUGS (5)
  1. DACTINOMYCIN [Suspect]
     Indication: RHABDOMYOSARCOMA
     Dosage: 0.4 MG; QD; IV
     Route: 042
     Dates: start: 20050720, end: 20050724
  2. ONCOVIN [Suspect]
     Indication: RHABDOMYOSARCOMA
     Dosage: 1 MG; QD; IV
     Route: 042
     Dates: start: 20050720, end: 20050720
  3. FAMOTIDINE [Concomitant]
  4. PRIMPERAN TAB [Concomitant]
  5. ZOFRAN [Concomitant]

REACTIONS (4)
  - ANOREXIA [None]
  - EAR HAEMORRHAGE [None]
  - PLATELET COUNT DECREASED [None]
  - STAPHYLOCOCCAL INFECTION [None]
